FAERS Safety Report 7577639-8 (Version None)
Quarter: 2011Q2

REPORT INFORMATION
  Report Type: 
  Country: None (occurrence: None)
  Receive Date: 20110628
  Receipt Date: 20110622
  Transmission Date: 20111010
  Serious: Yes (Other)
  Sender: FDA-Public Use
  Company Number: US-PFIZER INC-2011140869

PATIENT
  Sex: Female

DRUGS (3)
  1. OXYBUTYNIN CHLORIDE [Suspect]
     Dosage: UNK
  2. DETROL LA [Suspect]
     Dosage: UNK
  3. VESICARE [Suspect]
     Dosage: UNK

REACTIONS (5)
  - MALAISE [None]
  - LACRIMATION INCREASED [None]
  - LOSS OF CONSCIOUSNESS [None]
  - DRY EYE [None]
  - DRUG INEFFECTIVE [None]
